FAERS Safety Report 8025512-3 (Version None)
Quarter: 2012Q1

REPORT INFORMATION
  Report Type: 
  Country: None (occurrence: None)
  Receive Date: 20120105
  Receipt Date: 20111222
  Transmission Date: 20120608
  Serious: Yes (Life-Threatening, Other)
  Sender: FDA-Public Use
  Company Number: DE-CELGENEUS-062-21880-11121374

PATIENT
  Age: 53 Year
  Sex: Male
  Weight: 97 kg

DRUGS (11)
  1. ADRIAMYCIN PFS [Suspect]
     Dosage: 9 MILLIGRAM/SQ. METER
     Route: 041
     Dates: start: 20110831, end: 20110903
  2. EMBOLEX [Concomitant]
     Route: 065
  3. ZOMETA [Concomitant]
     Route: 065
  4. ADRIAMYCIN PFS [Suspect]
     Dosage: 9 MILLIGRAM/SQ. METER
     Route: 041
     Dates: start: 20110802, end: 20110805
  5. NOVALGIN [Concomitant]
     Dosage: 1500 MILLIGRAM
     Route: 065
  6. REVLIMID [Suspect]
     Dosage: 25 MILLIGRAM
     Route: 048
     Dates: start: 20110831, end: 20110920
  7. REVLIMID [Suspect]
     Indication: MULTIPLE MYELOMA
     Dosage: 25 MILLIGRAM
     Route: 048
     Dates: start: 20110607, end: 20110628
  8. DEXAMETHASONE [Suspect]
     Indication: MULTIPLE MYELOMA
     Dosage: 40 MILLIGRAM
     Route: 048
     Dates: start: 20110607, end: 20110626
  9. ADRIAMYCIN PFS [Suspect]
     Dosage: 9 MILLIGRAM/SQ. METER
     Route: 041
     Dates: start: 20110707, end: 20110708
  10. DEXAMETHASONE [Suspect]
     Dosage: 40 MILLIGRAM
     Route: 048
     Dates: start: 20110831, end: 20110919
  11. ADRIAMYCIN PFS [Suspect]
     Indication: MULTIPLE MYELOMA
     Dosage: 9 MILLIGRAM/SQ. METER
     Route: 041
     Dates: start: 20110608, end: 20110610

REACTIONS (2)
  - MALIGNANT MELANOMA STAGE II [None]
  - SUPERFICIAL SPREADING MELANOMA STAGE I [None]
